FAERS Safety Report 11665673 (Version 1)
Quarter: 2015Q4

REPORT INFORMATION
  Report Type: Spontaneous
  Country: US (occurrence: US)
  Receive Date: 20151027
  Receipt Date: 20151027
  Transmission Date: 20160304
  Serious: No
  Sender: FDA-Public Use
  Company Number: US-ELI_LILLY_AND_COMPANY-US201001000484

PATIENT
  Age: 66 Year
  Sex: Female

DRUGS (4)
  1. VITAMIN D [Concomitant]
     Active Substance: CHOLECALCIFEROL
  2. FORTEO [Suspect]
     Active Substance: TERIPARATIDE
     Dosage: 20 UG, DAILY (1/D)
     Dates: start: 2009, end: 200912
  3. FORTEO [Suspect]
     Active Substance: TERIPARATIDE
     Indication: OSTEOPOROSIS
     Dosage: 20 UG, DAILY (1/D)
     Dates: start: 20090508, end: 2009
  4. FORTEO [Suspect]
     Active Substance: TERIPARATIDE
     Dosage: 20 UG, UNK
     Dates: start: 20100101, end: 20100101

REACTIONS (14)
  - Dry skin [Unknown]
  - Nausea [Unknown]
  - Hair disorder [Unknown]
  - Skin disorder [Unknown]
  - Malaise [Unknown]
  - Bladder disorder [Unknown]
  - Rash [Unknown]
  - Pruritus [Recovering/Resolving]
  - Dry mouth [Unknown]
  - Pruritus [Not Recovered/Not Resolved]
  - Eyelids pruritus [Recovering/Resolving]
  - Dry eye [Unknown]
  - Nasal dryness [Unknown]
  - Rash [Recovering/Resolving]

NARRATIVE: CASE EVENT DATE: 2009
